FAERS Safety Report 12445986 (Version 1)
Quarter: 2016Q2

REPORT INFORMATION
  Report Type: Spontaneous
  Country: US (occurrence: US)
  Receive Date: 20160608
  Receipt Date: 20160608
  Transmission Date: 20160815
  Serious: No
  Sender: FDA-Public Use
  Company Number: US-JNJFOC-20160503699

PATIENT
  Sex: Female
  Weight: 81.19 kg

DRUGS (13)
  1. LEFLUNOMIDE. [Suspect]
     Active Substance: LEFLUNOMIDE
     Indication: RHEUMATOID ARTHRITIS
     Dosage: OVER THE PAST YEAR
     Route: 065
  2. HCQ [Concomitant]
     Active Substance: HYDROXYCHLOROQUINE SULFATE
     Route: 065
  3. PREDNISONE. [Concomitant]
     Active Substance: PREDNISONE
     Route: 065
  4. LEFLUNOMIDE. [Suspect]
     Active Substance: LEFLUNOMIDE
     Indication: RHEUMATOID ARTHRITIS
     Route: 065
     Dates: start: 201209
  5. GABAPENTIN. [Concomitant]
     Active Substance: GABAPENTIN
     Route: 065
  6. PANTOPRAZOLE [Concomitant]
     Active Substance: PANTOPRAZOLE SODIUM
     Route: 065
  7. TYLENOL [Suspect]
     Active Substance: ACETAMINOPHEN
     Indication: ARTHRALGIA
     Route: 065
  8. VENLAFAXINE [Concomitant]
     Active Substance: VENLAFAXINE HYDROCHLORIDE
     Dosage: EVERY OTHER DAY
     Route: 065
  9. TYLENOL [Suspect]
     Active Substance: ACETAMINOPHEN
     Route: 065
  10. IBUPROFEN. [Suspect]
     Active Substance: IBUPROFEN
     Indication: ARTHRALGIA
     Route: 065
  11. REMICADE [Suspect]
     Active Substance: INFLIXIMAB
     Indication: RHEUMATOID ARTHRITIS
     Dosage: UNTIL 2 YEARS AGO
     Route: 042
     Dates: start: 201209, end: 201605
  12. IBUPROFEN. [Suspect]
     Active Substance: IBUPROFEN
     Route: 065
  13. LEFLUNOMIDE. [Suspect]
     Active Substance: LEFLUNOMIDE
     Indication: RHEUMATOID ARTHRITIS
     Route: 065

REACTIONS (9)
  - Tinnitus [Unknown]
  - Breath sounds abnormal [Unknown]
  - Rheumatoid arthritis [Recovering/Resolving]
  - Hypoacusis [Unknown]
  - Hepatic steatosis [Unknown]
  - Fatigue [Unknown]
  - Weight increased [Unknown]
  - Drug ineffective [Unknown]
  - Productive cough [Unknown]
